FAERS Safety Report 7245478-3 (Version None)
Quarter: 2011Q1

REPORT INFORMATION
  Report Type: 
  Country: None (occurrence: None)
  Receive Date: 20110126
  Receipt Date: 20110117
  Transmission Date: 20110831
  Serious: Yes (Hospitalization, Other)
  Sender: FDA-Public Use
  Company Number: US-ASTRAZENECA-2010SE53676

PATIENT
  Age: 82 Year
  Sex: Male

DRUGS (1)
  1. NEXIUM [Suspect]
     Route: 048

REACTIONS (5)
  - VOMITING [None]
  - HAEMATEMESIS [None]
  - DRUG DOSE OMISSION [None]
  - PHARYNGEAL OPERATION [None]
  - WRONG DRUG ADMINISTERED [None]
